FAERS Safety Report 11905891 (Version 1)
Quarter: 2016Q1

REPORT INFORMATION
  Report Type: Spontaneous
  Country: US (occurrence: US)
  Receive Date: 20160111
  Receipt Date: 20160111
  Transmission Date: 20160526
  Serious: Yes (Hospitalization)
  Sender: FDA-Public Use
  Company Number: US-DRREDDYS-USA/USA/16/0055291

PATIENT
  Age: 17 Year
  Sex: Male

DRUGS (19)
  1. QUETIAPINE FUMARATE TABLETS [Suspect]
     Active Substance: QUETIAPINE FUMARATE
     Indication: AUTISM SPECTRUM DISORDER
     Dosage: 200 MG EVERY MORNING, 100 MG EVERY EVENING, AND 200 MG EVERY NIGHT.
     Route: 065
  2. QUETIAPINE FUMARATE TABLETS [Suspect]
     Active Substance: QUETIAPINE FUMARATE
     Dosage: 200 MG BY MOUTH TWICE A DAY AND 200 MG BY MOUTH AS NEEDED AT NIGHT.
     Route: 065
  3. DIVALPROEX SODIUM. [Concomitant]
     Active Substance: DIVALPROEX SODIUM
     Indication: AUTISM SPECTRUM DISORDER
  4. VALPROIC ACID. [Concomitant]
     Active Substance: VALPROIC ACID
     Indication: AUTISM SPECTRUM DISORDER
     Route: 065
  5. GUANFACINE. [Concomitant]
     Active Substance: GUANFACINE
     Indication: AUTISM SPECTRUM DISORDER
     Route: 048
  6. CLONIDINE. [Concomitant]
     Active Substance: CLONIDINE
     Indication: AUTISM SPECTRUM DISORDER
     Route: 065
  7. VALPROIC ACID. [Concomitant]
     Active Substance: VALPROIC ACID
     Indication: INTELLECTUAL DISABILITY
  8. CLONIDINE. [Concomitant]
     Active Substance: CLONIDINE
     Indication: INTELLECTUAL DISABILITY
  9. QUETIAPINE FUMARATE TABLETS [Suspect]
     Active Substance: QUETIAPINE FUMARATE
     Route: 065
  10. GUANFACINE. [Concomitant]
     Active Substance: GUANFACINE
     Indication: INTELLECTUAL DISABILITY
  11. PROCHLORPERAZINE. [Concomitant]
     Active Substance: PROCHLORPERAZINE
     Indication: INTELLECTUAL DISABILITY
  12. QUETIAPINE FUMARATE TABLETS [Suspect]
     Active Substance: QUETIAPINE FUMARATE
     Dosage: 300 MG EVERY MORNING, 200 MG EVERY EVENING, AND 200 MG EVERY NIGHT,
     Route: 065
  13. CHLORPROMAZINE. [Concomitant]
     Active Substance: CHLORPROMAZINE
     Indication: AUTISM SPECTRUM DISORDER
     Route: 048
  14. PROCHLORPERAZINE. [Concomitant]
     Active Substance: PROCHLORPERAZINE
     Indication: AUTISM SPECTRUM DISORDER
     Route: 065
  15. RISPERIDONE. [Suspect]
     Active Substance: RISPERIDONE
     Indication: AUTISM SPECTRUM DISORDER
     Route: 048
  16. RISPERIDONE. [Suspect]
     Active Substance: RISPERIDONE
     Indication: INTELLECTUAL DISABILITY
  17. QUETIAPINE FUMARATE TABLETS [Suspect]
     Active Substance: QUETIAPINE FUMARATE
     Indication: INTELLECTUAL DISABILITY
     Dosage: 200 MG TWICE DAILY AND 100 MG AT NOON FOR A TOTAL OF 500 MG DAILY,
     Route: 065
  18. DIVALPROEX SODIUM. [Concomitant]
     Active Substance: DIVALPROEX SODIUM
     Indication: INTELLECTUAL DISABILITY
  19. CHLORPROMAZINE. [Concomitant]
     Active Substance: CHLORPROMAZINE
     Indication: INTELLECTUAL DISABILITY

REACTIONS (4)
  - Intermittent explosive disorder [Recovering/Resolving]
  - Galactorrhoea [Recovering/Resolving]
  - Product quality issue [Unknown]
  - Drug ineffective [Unknown]
